FAERS Safety Report 6695390-3 (Version None)
Quarter: 2010Q2

REPORT INFORMATION
  Report Type: 
  Country: None (occurrence: None)
  Receive Date: 20100423
  Receipt Date: 20100423
  Transmission Date: 20101027
  Serious: Yes (Hospitalization)
  Sender: FDA-Public Use
  Company Number: None

PATIENT
  Age: 60 Year
  Sex: Female
  Weight: 65 kg

DRUGS (8)
  1. TAXOL [Suspect]
     Indication: BREAST CANCER
     Dosage: WEEKLY X4 IV RECENT (WEEKLY X4)
     Route: 042
  2. VICODIN [Concomitant]
  3. METFORMIN [Concomitant]
  4. ZOLOFT [Concomitant]
  5. AMITRIPTYLINE HYDROCHLORIDE [Concomitant]
  6. VIT D [Concomitant]
  7. GLIPIZIDE [Concomitant]
  8. OMEPRAZOLE [Concomitant]

REACTIONS (4)
  - ALVEOLITIS ALLERGIC [None]
  - ANAEMIA [None]
  - DRUG TOXICITY [None]
  - PYREXIA [None]
